FAERS Safety Report 7433780-1 (Version None)
Quarter: 2011Q2

REPORT INFORMATION
  Report Type: 
  Country: None (occurrence: None)
  Receive Date: 20110425
  Receipt Date: 20110415
  Transmission Date: 20111010
  Serious: Yes (Hospitalization)
  Sender: FDA-Public Use
  Company Number: FR-BIOGENIDEC-2011BI014465

PATIENT
  Age: 42 Year
  Sex: Female

DRUGS (4)
  1. TYSABRI [Suspect]
     Indication: MULTIPLE SCLEROSIS
     Route: 042
     Dates: start: 20081127
  2. DOXAZOSIN MESYLATE [Concomitant]
     Route: 048
     Dates: start: 20081127
  3. PREGABALINE [Concomitant]
     Indication: ANXIOLYTIC THERAPY
     Route: 048
     Dates: start: 20081127
  4. BACLOFENE [Concomitant]
     Indication: MUSCLE SPASTICITY
     Route: 048
     Dates: start: 20081127

REACTIONS (1)
  - MAMMOPLASTY [None]
